FAERS Safety Report 17790322 (Version 4)
Quarter: 2021Q1

REPORT INFORMATION
  Report Type: Spontaneous
  Country: US (occurrence: US)
  Receive Date: 20200514
  Receipt Date: 20210303
  Transmission Date: 20210419
  Serious: No
  Sender: FDA-Public Use
  Company Number: US-VIFOR (INTERNATIONAL) INC.-VIT-2020-05720

PATIENT
  Age: 94 Year
  Sex: Female
  Weight: 59.47 kg

DRUGS (16)
  1. CALCITRIOL. [Concomitant]
     Active Substance: CALCITRIOL
     Route: 048
     Dates: start: 20200207, end: 20200604
  2. BETAPACE [Concomitant]
     Active Substance: SOTALOL HYDROCHLORIDE
     Dosage: TAKE 1 IN AM AND 1/2 QHS
     Route: 048
     Dates: start: 20191126
  3. OMEGA [Concomitant]
     Route: 048
     Dates: start: 20191126
  4. XANAX XR [Concomitant]
     Active Substance: ALPRAZOLAM
     Dosage: EXTENDED RELEASE,
     Route: 048
     Dates: start: 20191126
  5. VELTASSA [Suspect]
     Active Substance: PATIROMER
     Indication: HYPERKALAEMIA
     Route: 048
     Dates: start: 20200307
  6. VELTASSA [Suspect]
     Active Substance: PATIROMER
     Route: 048
     Dates: start: 202002
  7. VELTASSA [Suspect]
     Active Substance: PATIROMER
     Route: 048
  8. LIDOCAINE. [Concomitant]
     Active Substance: LIDOCAINE
     Dosage: 5% TOPICAL PATCH 1 PATCH APPLY ON THE SKIN AS DIRECTED
     Route: 061
     Dates: start: 20191126
  9. NEURONTIN [Concomitant]
     Active Substance: GABAPENTIN
  10. VELTASSA [Suspect]
     Active Substance: PATIROMER
     Dosage: ONE PACKAGE/PACKET
     Route: 048
     Dates: start: 20210217, end: 20210217
  11. LIPITOR [Concomitant]
     Active Substance: ATORVASTATIN CALCIUM
     Dates: start: 20191126
  12. NORVASC [Concomitant]
     Active Substance: AMLODIPINE BESYLATE
     Route: 048
     Dates: start: 20191126
  13. METANX [Concomitant]
     Active Substance: LEVOMEFOLATE CALCIUM\METHYLCOBALAMIN\PYRIDOXAL PHOSPHATE ANHYDROUS
     Dosage: 3 MG?35 MG?2 MG?90.314 MG
     Route: 048
     Dates: start: 20191126
  14. MONTELUKAST [Concomitant]
     Active Substance: MONTELUKAST SODIUM
     Dosage: 1 TABLET BY MOUTH DAILY
     Route: 048
     Dates: start: 20191126
  15. ASPIRIN. [Concomitant]
     Active Substance: ASPIRIN
     Dosage: DELAYED RELEASE
     Route: 048
     Dates: start: 20191126
  16. COENZYME Q10 [Concomitant]
     Active Substance: DIETARY SUPPLEMENT\UBIDECARENONE
     Route: 048
     Dates: start: 20191126

REACTIONS (2)
  - Herpes zoster [Unknown]
  - Constipation [Unknown]

NARRATIVE: CASE EVENT DATE: 2020
